FAERS Safety Report 23599350 (Version 1)
Quarter: 2024Q1

REPORT INFORMATION
  Report Type: Spontaneous
  Country: US (occurrence: US)
  Receive Date: 20240306
  Receipt Date: 20240306
  Transmission Date: 20240410
  Serious: Yes (Hospitalization, Other)
  Sender: FDA-Public Use
  Company Number: US-BRISTOL-MYERS SQUIBB COMPANY-2024-035077

PATIENT
  Age: 92 Year
  Sex: Male
  Weight: 54.43 kg

DRUGS (3)
  1. REVLIMID [Suspect]
     Active Substance: LENALIDOMIDE
     Indication: Lymphoma
  2. LASIX [Concomitant]
     Active Substance: FUROSEMIDE
     Indication: Product used for unknown indication
  3. VITAMINS [UMBRELLA TERM] [Concomitant]
     Indication: Product used for unknown indication

REACTIONS (2)
  - COVID-19 pneumonia [Unknown]
  - Rash [Unknown]
